FAERS Safety Report 19648665 (Version 2)
Quarter: 2022Q4

REPORT INFORMATION
  Report Type: Spontaneous
  Country: US (occurrence: US)
  Receive Date: 20210802
  Receipt Date: 20221122
  Transmission Date: 20230112
  Serious: Yes (Other)
  Sender: FDA-Public Use
  Company Number: US-ENDO PHARMACEUTICALS INC-2021-009139

PATIENT
  Age: 69 Year
  Sex: Male

DRUGS (3)
  1. RANITIDINE HYDROCHLORIDE [Suspect]
     Active Substance: RANITIDINE HYDROCHLORIDE
     Indication: Dyspepsia
     Dosage: 150 MG, DAILY
     Route: 065
     Dates: start: 201010, end: 201910
  2. RANITIDINE [Suspect]
     Active Substance: RANITIDINE
     Indication: Dyspepsia
     Dosage: 150 MG, DAILY
     Route: 065
     Dates: start: 201010, end: 201910
  3. ZANTAC [Suspect]
     Active Substance: RANITIDINE HYDROCHLORIDE
     Indication: Product used for unknown indication
     Dosage: UNK UNKNOWN, UNKNOWN (OTC)
     Route: 065
     Dates: start: 2010, end: 2019

REACTIONS (2)
  - Renal cancer stage IV [Recovering/Resolving]
  - Lung carcinoma cell type unspecified stage IV [Recovering/Resolving]

NARRATIVE: CASE EVENT DATE: 20190901
